FAERS Safety Report 6694820-0 (Version None)
Quarter: 2010Q2

REPORT INFORMATION
  Report Type: 
  Country: None (occurrence: None)
  Receive Date: 20100420
  Receipt Date: 20100409
  Transmission Date: 20101027
  Serious: No
  Sender: FDA-Public Use
  Company Number: 1-22205560

PATIENT
  Age: 56 Year
  Sex: Male
  Weight: 61.8706 kg

DRUGS (12)
  1. ULTIVA [Suspect]
     Indication: MAINTENANCE OF ANAESTHESIA
     Dosage: 0.25 UG/KG/MIN
  2. SEVOFLURANE [Suspect]
     Indication: MAINTENANCE OF ANAESTHESIA
     Dosage: 2-3% VOL%, INHALATION
     Route: 055
  3. ACEBROPHYLLINE [Concomitant]
  4. MONTELUKAST SODIUM [Concomitant]
  5. MICRONIZED BUDESONIDE TURBUHALER WITH FORMOTEROL FUMARATE DIHYDRATE [Concomitant]
  6. FAMOTIDINE [Concomitant]
  7. GLYCOPYRROLATE [Concomitant]
  8. PROPOFOL [Concomitant]
  9. ROCURONIUM BROMIDE [Concomitant]
  10. ISEPAMICIN [Concomitant]
  11. LIDOCAINE AND EPINEPHRINE [Concomitant]
  12. SALBUTAMOL SULFATE [Concomitant]

REACTIONS (9)
  - AIRWAY COMPLICATION OF ANAESTHESIA [None]
  - ARTERIOSPASM CORONARY [None]
  - BLOOD PRESSURE DECREASED [None]
  - CORONARY ARTERY STENOSIS [None]
  - ELECTROCARDIOGRAM ST SEGMENT ELEVATION [None]
  - HEART RATE DECREASED [None]
  - MYOCARDIAL ISCHAEMIA [None]
  - RESUSCITATION [None]
  - VENTRICULAR FIBRILLATION [None]
